FAERS Safety Report 6699410-1 (Version None)
Quarter: 2010Q2

REPORT INFORMATION
  Report Type: 
  Country: None (occurrence: None)
  Receive Date: 20100427
  Receipt Date: 20100421
  Transmission Date: 20101027
  Serious: Yes (Hospitalization)
  Sender: FDA-Public Use
  Company Number: IL-ABBOTT-10P-082-0639774-00

PATIENT
  Sex: Male
  Weight: 52 kg

DRUGS (3)
  1. KALETRA [Suspect]
     Indication: HIV INFECTION
     Route: 048
     Dates: start: 20100221
  2. TRUVADA [Concomitant]
     Indication: HIV INFECTION
     Dates: start: 20100221
  3. RESPRIM FORTE [Concomitant]
     Indication: HIV INFECTION
     Dates: start: 20100221

REACTIONS (15)
  - ABDOMINAL PAIN UPPER [None]
  - ASTHENIA [None]
  - CHILLS [None]
  - DIARRHOEA [None]
  - ECZEMA [None]
  - HYPONATRAEMIA [None]
  - INFECTION [None]
  - LEUKOPENIA [None]
  - LYMPHOPENIA [None]
  - NAUSEA [None]
  - NIGHT SWEATS [None]
  - ORAL CANDIDIASIS [None]
  - ORAL DISCOMFORT [None]
  - VOMITING [None]
  - WOUND [None]
